FAERS Safety Report 22541544 (Version 1)
Quarter: 2023Q2

REPORT INFORMATION
  Report Type: Report from Study
  Country: US (occurrence: None)
  Receive Date: 20230609
  Receipt Date: 20230609
  Transmission Date: 20230722
  Serious: Yes (Hospitalization)
  Sender: FDA-Public Use
  Company Number: US-Eisai Medical Research-EC-2023-141967

PATIENT
  Age: 50 Year
  Sex: Female

DRUGS (3)
  1. LENVIMA [Suspect]
     Active Substance: LENVATINIB
     Indication: Thyroid cancer
     Route: 048
     Dates: start: 20230322, end: 2023
  2. LENVIMA [Suspect]
     Active Substance: LENVATINIB
     Dosage: MISSED 2 DOSES WHILE PATIENT WAS IN HOSPITAL FOR 2 DAYS
     Route: 048
     Dates: start: 20230501, end: 20230513
  3. LENVIMA [Suspect]
     Active Substance: LENVATINIB
     Route: 048
     Dates: start: 202305

REACTIONS (2)
  - Gallbladder disorder [Recovered/Resolved]
  - Blood pressure increased [Recovered/Resolved]

NARRATIVE: CASE EVENT DATE: 20230501
